FAERS Safety Report 6933639-X (Version None)
Quarter: 2010Q3

REPORT INFORMATION
  Report Type: 
  Country: None (occurrence: None)
  Receive Date: 20100820
  Receipt Date: 20100813
  Transmission Date: 20110219
  Serious: Yes (Hospitalization)
  Sender: FDA-Public Use
  Company Number: US-ASTRAZENECA-2010SE38248

PATIENT
  Age: 39 Year
  Sex: Male
  Weight: 113.4 kg

DRUGS (8)
  1. SEROQUEL XR [Suspect]
     Indication: SLEEP DISORDER
     Route: 048
     Dates: start: 20100401
  2. SEROQUEL XR [Suspect]
     Indication: DEPRESSION
     Route: 048
     Dates: start: 20100401
  3. METOPROLOL TARTRATE [Concomitant]
     Indication: HEART RATE IRREGULAR
     Route: 048
  4. TRAZODONE HCL [Concomitant]
     Route: 048
  5. PROTONIX [Concomitant]
     Indication: ABDOMINAL DISCOMFORT
     Route: 048
  6. NEURONTIN [Concomitant]
     Route: 048
  7. KLONOPIN [Concomitant]
     Route: 048
  8. CYMBALTA [Concomitant]
     Route: 048

REACTIONS (4)
  - ANXIETY [None]
  - CRYING [None]
  - DEPRESSED MOOD [None]
  - SELF INJURIOUS BEHAVIOUR [None]
